FAERS Safety Report 7179694-6 (Version None)
Quarter: 2010Q4

REPORT INFORMATION
  Report Type: 
  Country: None (occurrence: None)
  Receive Date: 20101221
  Receipt Date: 20101213
  Transmission Date: 20110411
  Serious: Yes (Death)
  Sender: FDA-Public Use
  Company Number: DE-ABBOTT-10P-062-0692775-00

PATIENT
  Age: 84 Year
  Sex: Male

DRUGS (2)
  1. SIXANTONE [Suspect]
     Indication: PROSTATE CANCER
     Route: 058
     Dates: start: 20100616
  2. BICALUTAMIDE [Concomitant]
     Indication: ANTIANDROGEN THERAPY
     Route: 048

REACTIONS (5)
  - CARDIAC FAILURE [None]
  - CORONARY ARTERY DISEASE [None]
  - DEATH [None]
  - DIABETES MELLITUS [None]
  - FLANK PAIN [None]
